FAERS Safety Report 4710952-8 (Version None)
Quarter: 2005Q3

REPORT INFORMATION
  Report Type: 
  Country: None (occurrence: None)
  Receive Date: 20050706
  Receipt Date: 20050706
  Transmission Date: 20060218
  Serious: No
  Sender: FDA-Public Use
  Company Number: None

PATIENT
  Age: 51 Year
  Sex: Male

DRUGS (2)
  1. LEVITRA [Suspect]
  2. VIAGRA [Suspect]

REACTIONS (2)
  - BLINDNESS UNILATERAL [None]
  - VISION BLURRED [None]
